FAERS Safety Report 5233251-7 (Version None)
Quarter: 2007Q1

REPORT INFORMATION
  Report Type: 
  Country: None (occurrence: None)
  Receive Date: 20070206
  Receipt Date: 20070124
  Transmission Date: 20070707
  Serious: Yes (Other)
  Sender: FDA-Public Use
  Company Number: 2006BI006780

PATIENT
  Age: 36 Year
  Sex: Female

DRUGS (8)
  1. AVONEX [Suspect]
     Indication: MULTIPLE SCLEROSIS
     Dosage: 30 UG; QW; IM
     Route: 030
     Dates: start: 19990801
  2. PROZAC [Concomitant]
  3. FUROSEMIDE [Concomitant]
  4. ZAROXOLYN [Concomitant]
  5. BUMEX [Concomitant]
  6. GLUCOTROL [Concomitant]
  7. LIPITOR [Concomitant]
  8. ACCUPRIL [Concomitant]

REACTIONS (2)
  - DIABETES MELLITUS [None]
  - DIALYSIS [None]
